FAERS Safety Report 8456172-5 (Version None)
Quarter: 2012Q2

REPORT INFORMATION
  Report Type: 
  Country: None (occurrence: None)
  Receive Date: 20120621
  Receipt Date: 20120618
  Transmission Date: 20120825
  Serious: Yes (Life-Threatening, Hospitalization)
  Sender: FDA-Public Use
  Company Number: US-ROCHE-1067889

PATIENT
  Sex: Male
  Weight: 73.5 kg

DRUGS (3)
  1. AVASTIN [Suspect]
     Indication: HEAD AND NECK CANCER
     Route: 042
     Dates: start: 20111216
  2. DOCETAXEL [Suspect]
     Indication: HEAD AND NECK CANCER
     Route: 042
     Dates: start: 20111216
  3. CARBOPLATIN [Suspect]
     Indication: HEAD AND NECK CANCER
     Route: 042
     Dates: start: 20111216

REACTIONS (1)
  - RESPIRATORY FAILURE [None]
